FAERS Safety Report 8793100 (Version 2)
Quarter: 2012Q4

REPORT INFORMATION
  Report Type: 
  Country: US (occurrence: US)
  Receive Date: 20120917
  Receipt Date: 20121217
  Transmission Date: 20130627
  Serious: Yes (Other)
  Sender: FDA-Public Use
  Company Number: US-BAYER-2012-094876

PATIENT
  Age: 53 Year
  Sex: Female

DRUGS (2)
  1. BETASERON [Suspect]
     Indication: RELAPSING-REMITTING MULTIPLE SCLEROSIS
     Dosage: 6 miu, QOD
     Route: 058
     Dates: start: 20120807
  2. CYMBALTA [Concomitant]
     Indication: DEPRESSION
     Dosage: UNK
     Dates: start: 201204

REACTIONS (5)
  - Abasia [Recovering/Resolving]
  - Paralysis [Recovering/Resolving]
  - Muscle spasms [Recovering/Resolving]
  - Mobility decreased [Recovering/Resolving]
  - Asthenia [Recovered/Resolved]
